FAERS Safety Report 13431284 (Version 1)
Quarter: 2017Q2

REPORT INFORMATION
  Report Type: Spontaneous
  Country: FR (occurrence: FR)
  Receive Date: 20170412
  Receipt Date: 20170412
  Transmission Date: 20170830
  Serious: Yes (Life-Threatening, Other)
  Sender: FDA-Public Use
  Company Number: FR-GLENMARK PHARMACEUTICALS-2017GMK027074

PATIENT
  Sex: Male

DRUGS (6)
  1. FLUCONAZOLE. [Interacting]
     Active Substance: FLUCONAZOLE
     Dosage: 400 MG, QD
     Route: 042
     Dates: start: 20160423
  2. OXYCODONE [Interacting]
     Active Substance: OXYCODONE
     Indication: PAIN
     Dosage: 10 MG, EVERY 4 HR
     Route: 065
     Dates: start: 20160412
  3. PREGABALIN. [Interacting]
     Active Substance: PREGABALIN
     Indication: PRODUCT USED FOR UNKNOWN INDICATION
     Dosage: 200 MG X 2
     Route: 048
  4. DIAZEPAM. [Interacting]
     Active Substance: DIAZEPAM
     Indication: PRODUCT USED FOR UNKNOWN INDICATION
     Dosage: 6 MG, UNK
     Route: 048
  5. OXYCODONE [Interacting]
     Active Substance: OXYCODONE
     Indication: PAIN
     Dosage: 60 MG, EVERY 12 HRS
     Route: 065
     Dates: start: 20160412
  6. FLUCONAZOLE. [Suspect]
     Active Substance: FLUCONAZOLE
     Indication: URINARY TRACT INFECTION FUNGAL
     Dosage: 800 MG, UNK
     Route: 042
     Dates: start: 20160422

REACTIONS (2)
  - Respiratory depression [Recovering/Resolving]
  - Drug interaction [Recovering/Resolving]

NARRATIVE: CASE EVENT DATE: 20160423
